FAERS Safety Report 6969877-X (Version None)
Quarter: 2010Q3

REPORT INFORMATION
  Report Type: 
  Country: None (occurrence: None)
  Receive Date: 20100908
  Receipt Date: 20100825
  Transmission Date: 20110219
  Serious: Yes (Other)
  Sender: FDA-Public Use
  Company Number: ES-RANBAXY-2010RR-37865

PATIENT
  Age: 52 Year
  Sex: Female

DRUGS (2)
  1. GABAPENTIN [Suspect]
     Route: 048
  2. CLONAZEPAM [Concomitant]

REACTIONS (2)
  - DEPENDENCE [None]
  - DRUG ABUSE [None]
